FAERS Safety Report 9261503 (Version 1)
Quarter: 2013Q2

REPORT INFORMATION
  Report Type: Spontaneous
  Country: BR (occurrence: BR)
  Receive Date: 20130429
  Receipt Date: 20130429
  Transmission Date: 20140414
  Serious: Yes (Death)
  Sender: FDA-Public Use
  Company Number: BR-ASTRAZENECA-2013SE28456

PATIENT
  Age: 69 Year
  Sex: Male

DRUGS (2)
  1. CRESTOR [Suspect]
     Route: 048
     Dates: end: 201304
  2. BRILINTA [Suspect]
     Route: 048
     Dates: end: 201304

REACTIONS (1)
  - Malaise [Fatal]
